FAERS Safety Report 12896542 (Version 1)
Quarter: 2016Q4

REPORT INFORMATION
  Report Type: Spontaneous
  Country: US (occurrence: US)
  Receive Date: 20161031
  Receipt Date: 20161031
  Transmission Date: 20170207
  Serious: Yes (Life-Threatening, Hospitalization, Other)
  Sender: FDA-Public Use
  Company Number: US-MYLANLABS-2016M1046436

PATIENT

DRUGS (3)
  1. ZONISAMIDE. [Suspect]
     Active Substance: ZONISAMIDE
     Dosage: 7.5G; 150X50MG TABLETS
     Route: 048
  2. ZONISAMIDE. [Suspect]
     Active Substance: ZONISAMIDE
     Indication: AFFECTIVE DISORDER
     Route: 048
  3. FLUOXETINE [Concomitant]
     Active Substance: FLUOXETINE HYDROCHLORIDE
     Indication: AFFECTIVE DISORDER
     Dosage: HER MORNING DOSE
     Route: 048

REACTIONS (6)
  - Electrocardiogram T wave amplitude decreased [Recovered/Resolved]
  - Hypotension [Recovered/Resolved]
  - Coma [Recovered/Resolved]
  - Metabolic acidosis [Recovered/Resolved]
  - Overdose [Recovered/Resolved]
  - Electrocardiogram QT prolonged [Recovered/Resolved]
